FAERS Safety Report 21342325 (Version 1)
Quarter: 2022Q3

REPORT INFORMATION
  Report Type: Spontaneous
  Country: US (occurrence: None)
  Receive Date: 20220915
  Receipt Date: 20220915
  Transmission Date: 20221026
  Serious: Yes (Hospitalization, Other)
  Sender: FDA-Public Use
  Company Number: None

PATIENT
  Age: 43 Year
  Sex: Female
  Weight: 85.05 kg

DRUGS (8)
  1. GADOBUTROL [Suspect]
     Active Substance: GADOBUTROL
     Indication: Magnetic resonance imaging
     Route: 042
     Dates: start: 20220624
  2. OMEPRAZOLE [Concomitant]
     Active Substance: OMEPRAZOLE
  3. GLUCOSAMINE [Concomitant]
     Active Substance: GLUCOSAMINE
  4. HA [Concomitant]
  5. COENZYME Q10 [Concomitant]
     Active Substance: DIETARY SUPPLEMENT\UBIDECARENONE
  6. FISH OIL [Concomitant]
     Active Substance: FISH OIL
  7. MAGNESIUM [Concomitant]
     Active Substance: MAGNESIUM
  8. VITAMINS [Concomitant]
     Active Substance: VITAMINS

REACTIONS (20)
  - Injection site coldness [None]
  - Nausea [None]
  - Urinary incontinence [None]
  - Hypoaesthesia [None]
  - Muscle twitching [None]
  - Blepharospasm [None]
  - Muscle twitching [None]
  - Muscle spasms [None]
  - Paraesthesia [None]
  - Paraesthesia [None]
  - Sensory disturbance [None]
  - Vomiting [None]
  - Lacrimation increased [None]
  - Oropharyngeal pain [None]
  - Dysgeusia [None]
  - Headache [None]
  - Tremor [None]
  - Tremor [None]
  - Dyskinesia [None]
  - Dyskinesia [None]

NARRATIVE: CASE EVENT DATE: 20220624
